FAERS Safety Report 24319077 (Version 1)
Quarter: 2024Q3

REPORT INFORMATION
  Report Type: Spontaneous
  Country: US (occurrence: US)
  Receive Date: 20240913
  Receipt Date: 20240913
  Transmission Date: 20241017
  Serious: Yes (Other)
  Sender: RADIUS PHARM
  Company Number: US-RADIUS HEALTH INC.-2024US006965

PATIENT
  Age: 90 Year
  Sex: Female

DRUGS (2)
  1. TYMLOS [Suspect]
     Active Substance: ABALOPARATIDE
     Indication: Product used for unknown indication
     Dosage: 1 CLICK
     Dates: start: 20240701, end: 20240724
  2. TYMLOS [Suspect]
     Active Substance: ABALOPARATIDE
     Dosage: ADDED 3 CLICKS DAILY
     Dates: start: 20240724, end: 20240813

REACTIONS (2)
  - Soft tissue mass [Not Recovered/Not Resolved]
  - Off label use [Unknown]

NARRATIVE: CASE EVENT DATE: 20240701
